FAERS Safety Report 20833079 (Version 1)
Quarter: 2022Q2

REPORT INFORMATION
  Report Type: Spontaneous
  Country: US (occurrence: None)
  Receive Date: 20220514
  Receipt Date: 20220514
  Transmission Date: 20220721
  Serious: Yes (Hospitalization)
  Sender: FDA-Public Use
  Company Number: None

PATIENT
  Sex: Male
  Weight: 97 kg

DRUGS (3)
  1. METHOTREXATE [Suspect]
     Active Substance: METHOTREXATE
  2. ONCASPAR [Concomitant]
     Active Substance: PEGASPARGASE
  3. VINCRISTIEN SULFATE [Concomitant]

REACTIONS (8)
  - Dizziness [None]
  - Lethargy [None]
  - Pallor [None]
  - Oxygen saturation decreased [None]
  - Hypotension [None]
  - Bradycardia [None]
  - Skin discolouration [None]
  - Unresponsive to stimuli [None]

NARRATIVE: CASE EVENT DATE: 20220512
